FAERS Safety Report 4768909-7 (Version None)
Quarter: 2005Q3

REPORT INFORMATION
  Report Type: 
  Country: None (occurrence: None)
  Receive Date: 20050914
  Receipt Date: 20050829
  Transmission Date: 20060218
  Serious: Yes (Hospitalization)
  Sender: FDA-Public Use
  Company Number: S05-USA-03538-01

PATIENT
  Age: 86 Year
  Sex: Female
  Weight: 77.1115 kg

DRUGS (17)
  1. TIAZAC [Suspect]
     Indication: HYPERTENSION
     Dosage: 240 MG QD PO
     Route: 048
     Dates: start: 20021201
  2. TIKOSYN [Concomitant]
  3. XANAX [Concomitant]
  4. VITAMIN B-12 [Concomitant]
  5. FOLIC ACID [Concomitant]
  6. TYLENOL [Concomitant]
  7. GLUCOSAMINE [Concomitant]
  8. OS-CAL (CALCIUM) [Concomitant]
  9. ASPIRIN [Concomitant]
  10. MULTIVITAMIN WITH ZINC [Concomitant]
  11. PEPCID AC [Concomitant]
  12. MYLANTA [Concomitant]
  13. DULCOLAX [Concomitant]
  14. METAMUCIL (PSYLLIUM) [Concomitant]
  15. CITRACAL (CALCIUM CITRATE) [Concomitant]
  16. CENTRUM [Concomitant]
  17. PROZAC [Concomitant]

REACTIONS (37)
  - ANAEMIA [None]
  - ANTINUCLEAR ANTIBODY POSITIVE [None]
  - ATRIAL FIBRILLATION [None]
  - BLOOD AMINO ACID LEVEL INCREASED [None]
  - BLOOD FOLATE INCREASED [None]
  - BLOOD MAGNESIUM INCREASED [None]
  - CARDIAC PACEMAKER MALFUNCTION [None]
  - COUGH [None]
  - DEAFNESS NEUROSENSORY [None]
  - DEVICE FAILURE [None]
  - DRUG INEFFECTIVE [None]
  - DUODENITIS [None]
  - ERUCTATION [None]
  - ERYTHEMA [None]
  - EUSTACHIAN TUBE DYSFUNCTION [None]
  - FATIGUE [None]
  - FEELING ABNORMAL [None]
  - FLATULENCE [None]
  - GASTRITIS [None]
  - GLOSSITIS [None]
  - GLOSSODYNIA [None]
  - HEART RATE INCREASED [None]
  - HYPERSENSITIVITY [None]
  - NASAL CONGESTION [None]
  - NASAL MUCOSA ATROPHY [None]
  - NASAL OEDEMA [None]
  - PAIN [None]
  - PALPITATIONS [None]
  - POSTNASAL DRIP [None]
  - REFUSAL OF TREATMENT BY RELATIVE [None]
  - RHINORRHOEA [None]
  - SWELLING [None]
  - SWOLLEN TONGUE [None]
  - TONGUE DISORDER [None]
  - TYMPANIC MEMBRANE DISORDER [None]
  - VITAMIN B12 DEFICIENCY [None]
  - WEIGHT DECREASED [None]
